FAERS Safety Report 12472909 (Version 3)
Quarter: 2016Q3

REPORT INFORMATION
  Report Type: Other
  Country: JP (occurrence: JP)
  Receive Date: 20160616
  Receipt Date: 20160706
  Transmission Date: 20161109
  Serious: Yes (Death)
  Sender: FDA-Public Use
  Company Number: JP-GUERBET LLC-1053872

PATIENT
  Age: 69 Year
  Sex: Male

DRUGS (2)
  1. LIPIODOL [Suspect]
     Active Substance: ETHIODIZED OIL
     Indication: THERAPEUTIC EMBOLISATION
     Route: 013
  2. HISTOACRYL [Concomitant]
     Active Substance: ENBUCRILATE

REACTIONS (2)
  - Off label use [Fatal]
  - Intestinal ischaemia [Fatal]
